FAERS Safety Report 16182347 (Version 1)
Quarter: 2019Q2

REPORT INFORMATION
  Report Type: Spontaneous
  Country: FR (occurrence: FR)
  Receive Date: 20190411
  Receipt Date: 20190411
  Transmission Date: 20190711
  Serious: Yes (Disabling, Other)
  Sender: FDA-Public Use
  Company Number: FR-ORION CORPORATION ORION PHARMA-TREX2019-1073

PATIENT
  Age: 32 Year
  Sex: Male

DRUGS (1)
  1. METHOTREXATE (TRADE NAME UNKNOWN) [Suspect]
     Active Substance: METHOTREXATE
     Indication: PARAPSORIASIS
     Dosage: AVERAGE WEEKLY DOSE OF 15 MG
     Route: 065
     Dates: start: 201603, end: 20181015

REACTIONS (4)
  - Vertigo [Recovered/Resolved]
  - Hyporeflexia [Unknown]
  - Product use in unapproved indication [Unknown]
  - Neurotoxicity [Recovered/Resolved]

NARRATIVE: CASE EVENT DATE: 201603
